FAERS Safety Report 11026260 (Version 1)
Quarter: 2015Q2

REPORT INFORMATION
  Report Type: Spontaneous
  Country: US (occurrence: US)
  Receive Date: 20150414
  Receipt Date: 20150414
  Transmission Date: 20150821
  Serious: Yes (Hospitalization)
  Sender: FDA-Public Use
  Company Number: US-ASTRAZENECA-2015SE34061

PATIENT
  Age: 57 Year
  Sex: Male
  Weight: 90.7 kg

DRUGS (12)
  1. CITALOPRAM [Concomitant]
     Active Substance: CITALOPRAM HYDROBROMIDE
     Indication: ANXIETY
  2. MUTI-VITAMIN [Concomitant]
     Dosage: DAILY
  3. LAXATIVE [Concomitant]
     Active Substance: UNSPECIFIED INGREDIENT
  4. NEXIUM [Suspect]
     Active Substance: ESOMEPRAZOLE MAGNESIUM
     Indication: GASTROOESOPHAGEAL REFLUX DISEASE
     Route: 048
  5. AMLODIPINE BENZAPRIL [Concomitant]
     Active Substance: AMLODIPINE BESYLATE\BENAZEPRIL HYDROCHLORIDE
     Indication: BLOOD PRESSURE ABNORMAL
  6. PRILOSEC OTC [Suspect]
     Active Substance: OMEPRAZOLE MAGNESIUM
     Indication: GASTROOESOPHAGEAL REFLUX DISEASE
     Route: 048
  7. GENERIC-UNSPECIFIED [Suspect]
     Active Substance: UNSPECIFIED INGREDIENT
     Route: 065
  8. OXYCODONE [Concomitant]
     Active Substance: OXYCODONE
     Indication: PAIN
  9. CITALOPRAM [Concomitant]
     Active Substance: CITALOPRAM HYDROBROMIDE
     Indication: DEPRESSION
  10. NAPOXREN [Concomitant]
  11. DICYLAMINE [Concomitant]
     Indication: DIVERTICULITIS
  12. AMLODIPINE BENZAPRIL [Concomitant]
     Active Substance: AMLODIPINE BESYLATE\BENAZEPRIL HYDROCHLORIDE
     Indication: BLOOD PRESSURE ABNORMAL

REACTIONS (19)
  - Musculoskeletal discomfort [Unknown]
  - Drug dose omission [Unknown]
  - Spinal fracture [Unknown]
  - Hypertension [Unknown]
  - Vomiting [Recovered/Resolved]
  - Off label use [Unknown]
  - Gait disturbance [Unknown]
  - Gait disturbance [Unknown]
  - Headache [Recovered/Resolved]
  - Fall [Recovering/Resolving]
  - Malaise [Unknown]
  - Gastrooesophageal reflux disease [Unknown]
  - Vision blurred [Unknown]
  - Hip fracture [Unknown]
  - Overweight [Unknown]
  - Impaired driving ability [None]
  - Dyspepsia [Unknown]
  - Depression [Unknown]
  - Drug ineffective [Unknown]

NARRATIVE: CASE EVENT DATE: 201311
